FAERS Safety Report 11039390 (Version 2)
Quarter: 2015Q2

REPORT INFORMATION
  Report Type: Spontaneous
  Country: JP (occurrence: JP)
  Receive Date: 20150416
  Receipt Date: 20150424
  Transmission Date: 20150821
  Serious: Yes (Other)
  Sender: FDA-Public Use
  Company Number: JP-ASTRAZENECA-2015SE35142

PATIENT
  Age: 47 Year
  Sex: Female

DRUGS (1)
  1. QUETIAPINE [Suspect]
     Active Substance: QUETIAPINE
     Dosage: GENERIC, 50 MG, DAILY
     Route: 048

REACTIONS (2)
  - Urine potassium increased [Unknown]
  - Blood potassium increased [Unknown]
